FAERS Safety Report 14196517 (Version 3)
Quarter: 2018Q2

REPORT INFORMATION
  Report Type: Spontaneous
  Country: FI (occurrence: FI)
  Receive Date: 20171116
  Receipt Date: 20180606
  Transmission Date: 20180711
  Serious: Yes (Hospitalization, Other)
  Sender: FDA-Public Use
  Company Number: FI-CELLTRION INC.-2017FI015721

PATIENT

DRUGS (5)
  1. AZAMUN [Concomitant]
     Active Substance: AZATHIOPRINE
     Dosage: 50 MG, BID
  2. CYCLOSPORIN [Suspect]
     Active Substance: CYCLOSPORINE
     Indication: COLITIS ULCERATIVE
     Dosage: 125 MG, UNK
     Route: 042
  3. ASACOL [Concomitant]
     Active Substance: MESALAMINE
     Dosage: 1600 MG, BID
     Route: 065
  4. INFLECTRA [Suspect]
     Active Substance: INFLIXIMAB-DYYB
     Indication: COLITIS ULCERATIVE
     Dosage: 300 MG, UNK
     Route: 042
     Dates: start: 20171020, end: 20171020
  5. INFLECTRA [Suspect]
     Active Substance: INFLIXIMAB-DYYB
     Dosage: 300 MG, UNK
     Route: 042
     Dates: start: 20171031, end: 20171031

REACTIONS (4)
  - Listeriosis [Unknown]
  - Sepsis [Unknown]
  - Colitis [Unknown]
  - Drug interaction [Unknown]
